FAERS Safety Report 8636214 (Version 3)
Quarter: 2013Q4

REPORT INFORMATION
  Report Type: Report from Study
  Country: JP (occurrence: JP)
  Receive Date: 20120626
  Receipt Date: 20131010
  Transmission Date: 20140711
  Serious: Yes (Other)
  Sender: FDA-Public Use
  Company Number: JP-ROCHE-1077595

PATIENT
  Sex: 0

DRUGS (3)
  1. BEVACIZUMAB [Suspect]
     Indication: NON-SMALL CELL LUNG CANCER
     Route: 042
  2. CISPLATIN [Suspect]
     Indication: NON-SMALL CELL LUNG CANCER
     Route: 042
  3. S-1 (5-FU DERIVATIVE) (GIMERACIL, OTERACIL POTASSIUM) [Suspect]
     Indication: NON-SMALL CELL LUNG CANCER
     Route: 048

REACTIONS (14)
  - Leukopenia [Unknown]
  - Neutropenia [Unknown]
  - Anaemia [Unknown]
  - Thrombocytopenia [Unknown]
  - Febrile neutropenia [Unknown]
  - Hypertension [Unknown]
  - Decreased appetite [Unknown]
  - Stomatitis [Unknown]
  - Blood alkaline phosphatase increased [Unknown]
  - Amylase increased [Unknown]
  - Hyponatraemia [Unknown]
  - Intestinal perforation [Unknown]
  - Cognitive disorder [Unknown]
  - Pneumonia [Unknown]
